FAERS Safety Report 25754707 (Version 1)
Quarter: 2025Q3

REPORT INFORMATION
  Report Type: Spontaneous
  Country: JP (occurrence: JP)
  Receive Date: 20250903
  Receipt Date: 20250903
  Transmission Date: 20251021
  Serious: Yes (Other)
  Sender: EMD SERONO INC
  Company Number: JP-Merck Healthcare KGaA-2025044058

PATIENT
  Age: 62 Year
  Sex: Male
  Weight: 63 kg

DRUGS (6)
  1. METGLUCO [Suspect]
     Active Substance: METFORMIN HYDROCHLORIDE
     Indication: Product used for unknown indication
  2. REPAGLINIDE [Suspect]
     Active Substance: REPAGLINIDE
     Indication: Product used for unknown indication
  3. JARDIANCE [Concomitant]
     Active Substance: EMPAGLIFLOZIN
     Indication: Product used for unknown indication
  4. SEMAGLUTIDE [Concomitant]
     Active Substance: SEMAGLUTIDE
     Indication: Product used for unknown indication
  5. AWIQLI [Concomitant]
     Indication: Product used for unknown indication
  6. DULAGLUTIDE [Concomitant]
     Active Substance: DULAGLUTIDE
     Indication: Product used for unknown indication

REACTIONS (3)
  - Atrial fibrillation [Unknown]
  - Glycosylated haemoglobin increased [Recovering/Resolving]
  - Weight decreased [Unknown]

NARRATIVE: CASE EVENT DATE: 20250825
